FAERS Safety Report 8235355-3 (Version None)
Quarter: 2012Q1

REPORT INFORMATION
  Report Type: 
  Country: None (occurrence: None)
  Receive Date: 20120322
  Receipt Date: 20120308
  Transmission Date: 20120608
  Serious: Yes (Hospitalization, Other)
  Sender: FDA-Public Use
  Company Number: 2012P1009194

PATIENT
  Age: 48 Year
  Sex: Female
  Weight: 81.6475 kg

DRUGS (15)
  1. LATUDA [Concomitant]
  2. LISINOPRIL [Concomitant]
  3. GUANFACINE HYDROCHLORIDE [Concomitant]
  4. THEOPHYLLINE-SR [Concomitant]
  5. PERCOCET [Suspect]
     Dosage: 1 TABLET; BID;
  6. METFORMIN HCL [Concomitant]
  7. OXCARBAZEPINE [Concomitant]
  8. LEXAPRO [Concomitant]
  9. ASPIRIN [Concomitant]
  10. FENTANYL [Suspect]
     Indication: BACK PAIN
     Dosage: 1 PATCH; QID, TDER
     Route: 062
     Dates: start: 20120227
  11. FENTANYL [Suspect]
     Indication: NECK PAIN
     Dosage: 1 PATCH; QID, TDER
     Route: 062
     Dates: start: 20120227
  12. FENTANYL [Suspect]
     Indication: ARTHRITIS
     Dosage: 1 PATCH; QID, TDER
     Route: 062
     Dates: start: 20120227
  13. FENTANYL [Suspect]
     Indication: PAIN
     Dosage: 1 PATCH; QID, TDER
     Route: 062
     Dates: start: 20120227
  14. NORVASC [Concomitant]
  15. BENZTROPINE MESYLATE [Concomitant]

REACTIONS (15)
  - GASTRIC DISORDER [None]
  - AGITATION [None]
  - PHARYNGEAL OEDEMA [None]
  - OVERDOSE [None]
  - MENTAL DISORDER [None]
  - EYE PAIN [None]
  - GAIT DISTURBANCE [None]
  - OROPHARYNGEAL PAIN [None]
  - MOOD SWINGS [None]
  - DYSPHONIA [None]
  - HEADACHE [None]
  - PYREXIA [None]
  - SUICIDE ATTEMPT [None]
  - PAIN IN EXTREMITY [None]
  - VISION BLURRED [None]
